FAERS Safety Report 9436542 (Version 1)
Quarter: 2013Q3

REPORT INFORMATION
  Report Type: Spontaneous
  Country: CA (occurrence: CA)
  Receive Date: 20130802
  Receipt Date: 20130802
  Transmission Date: 20140515
  Serious: No
  Sender: FDA-Public Use
  Company Number: CA-OPTIMER-20130128

PATIENT
  Age: 66 Year
  Sex: Female
  Weight: 61.68 kg

DRUGS (12)
  1. DIFICID [Suspect]
     Indication: CLOSTRIDIUM DIFFICILE COLITIS
     Dosage: 200 MG, BID
     Route: 048
     Dates: start: 20130405, end: 20130414
  2. ARTHROTEC [Concomitant]
     Indication: ARTHRITIS
     Dosage: 50 MG, QD
     Route: 048
  3. SACCHAROMYCES BOULARDII [Concomitant]
     Dosage: 4 TABLETS DOWN TO 1 TABLET, QD
     Route: 048
     Dates: start: 201212
  4. VANCOMYCIN [Concomitant]
     Indication: CLOSTRIDIUM DIFFICILE COLITIS
     Dosage: UNK
     Dates: start: 20121222, end: 20130104
  5. VANCOMYCIN [Concomitant]
     Dosage: 4 TABLETS, QD
     Route: 048
     Dates: start: 20130104, end: 20130110
  6. VANCOMYCIN [Concomitant]
     Dosage: 2 TABLETS, QD
     Route: 048
     Dates: start: 20130110, end: 20130116
  7. VANCOMYCIN [Concomitant]
     Dosage: 1 TABLET, QD
     Route: 048
     Dates: start: 20130116, end: 20130122
  8. VANCOMYCIN [Concomitant]
     Dosage: 1 TABLET, Q 2 DAYS
     Route: 048
     Dates: start: 20130122, end: 20130128
  9. VANCOMYCIN [Concomitant]
     Dosage: 1 TABLET, Q 3 DAYS
     Route: 048
     Dates: start: 20130128, end: 20130203
  10. VANCOMYCIN [Concomitant]
     Dosage: UNK
     Dates: start: 20130203, end: 20130310
  11. VANCOMYCIN [Concomitant]
     Dosage: UNK
     Dates: start: 20130321, end: 20130404
  12. VANCOMYCIN [Concomitant]
     Dosage: UNK
     Dates: start: 20130417

REACTIONS (2)
  - Drug ineffective [Not Recovered/Not Resolved]
  - Diarrhoea [Not Recovered/Not Resolved]
